FAERS Safety Report 7677968-3 (Version None)
Quarter: 2011Q3

REPORT INFORMATION
  Report Type: 
  Country: None (occurrence: None)
  Receive Date: 20110811
  Receipt Date: 20110727
  Transmission Date: 20111222
  Serious: Yes (Hospitalization)
  Sender: FDA-Public Use
  Company Number: US-GLAXOSMITHKLINE-A0874095A

PATIENT
  Age: 42 Year
  Sex: Male
  Weight: 140.9 kg

DRUGS (4)
  1. GLUCOPHAGE [Concomitant]
  2. ALTACE [Concomitant]
  3. METOPROLOL TARTRATE [Concomitant]
  4. AVANDIA [Suspect]
     Indication: DIABETES MELLITUS
     Dosage: 8MG TWICE PER DAY
     Route: 048
     Dates: start: 20000601, end: 20090401

REACTIONS (2)
  - MYOCARDIAL INFARCTION [None]
  - CORONARY ARTERY DISEASE [None]
